FAERS Safety Report 12171880 (Version 1)
Quarter: 2016Q1

REPORT INFORMATION
  Report Type: Spontaneous
  Country: SK (occurrence: SK)
  Receive Date: 20160311
  Receipt Date: 20160311
  Transmission Date: 20160526
  Serious: Yes (Other)
  Sender: FDA-Public Use
  Company Number: SK-BAYER-2016-041818

PATIENT
  Weight: 1.3 kg

DRUGS (2)
  1. HEPARIN [Concomitant]
     Active Substance: HEPARIN SODIUM
     Dosage: FULL DOSE
     Route: 064
  2. ASPIRIN. [Suspect]
     Active Substance: ASPIRIN
     Dosage: 100 MG, QD
     Route: 064

REACTIONS (4)
  - Premature baby [Recovered/Resolved]
  - Foetal exposure timing unspecified [None]
  - Foetal growth restriction [None]
  - Low birth weight baby [None]
